FAERS Safety Report 6329005-0 (Version None)
Quarter: 2009Q3

REPORT INFORMATION
  Report Type: 
  Country: None (occurrence: None)
  Receive Date: 20090826
  Receipt Date: 20090818
  Transmission Date: 20100115
  Serious: Yes (Hospitalization, Disabling, Other)
  Sender: FDA-Public Use
  Company Number: CA-WYE-H09157009

PATIENT
  Sex: Male
  Weight: 76.5 kg

DRUGS (11)
  1. TEMSIROLIMUS [Suspect]
     Indication: RENAL CELL CARCINOMA
     Route: 042
     Dates: start: 20090318, end: 20090422
  2. TEMSIROLIMUS [Suspect]
     Route: 042
     Dates: start: 20090513
  3. LIPITOR [Concomitant]
     Indication: HYPERCHOLESTEROLAEMIA
     Dosage: 40 MG ^LD^
     Route: 048
     Dates: start: 20040616
  4. LYRICA [Concomitant]
     Indication: PROPHYLAXIS
     Route: 048
     Dates: start: 20081107
  5. BENADRYL [Concomitant]
     Indication: ALLERGY PROPHYLAXIS
     Route: 042
     Dates: start: 20090318
  6. NORVASC [Concomitant]
     Indication: HYPERTENSION
     Dosage: 10 MG ^LD^
     Route: 048
     Dates: start: 20090414
  7. ACETAMINOPHEN [Concomitant]
     Indication: HEADACHE
     Dosage: 325 MG PRN
     Route: 048
     Dates: start: 20090319
  8. HYDROCHLOROTHIAZIDE [Concomitant]
     Indication: HYPERTENSION
     Dosage: 25 MG  - FREQUENCY NOT SPECIFIED
     Route: 048
     Dates: start: 20090422
  9. BEVACIZUMAB [Suspect]
     Indication: RENAL CELL CARCINOMA
     Route: 042
     Dates: start: 20090318, end: 20090401
  10. BEVACIZUMAB [Suspect]
     Route: 042
     Dates: start: 20090101
  11. ATIVAN [Concomitant]
     Indication: NERVOUSNESS
     Dosage: 1 MG PRN
     Route: 048
     Dates: start: 20090311

REACTIONS (2)
  - HEADACHE [None]
  - PNEUMONIA [None]
